FAERS Safety Report 15902081 (Version 2)
Quarter: 2019Q1

REPORT INFORMATION
  Report Type: Spontaneous
  Country: US (occurrence: US)
  Receive Date: 20190201
  Receipt Date: 20190225
  Transmission Date: 20190417
  Serious: Yes (Other)
  Sender: FDA-Public Use
  Company Number: US-ALLERGAN-1904485US

PATIENT
  Age: 49 Year
  Sex: Female

DRUGS (1)
  1. ESTRACE [Suspect]
     Active Substance: ESTRADIOL
     Indication: ATROPHIC VULVOVAGINITIS
     Dosage: 2 MG, UNK
     Route: 065

REACTIONS (5)
  - Incorrect dose administered [Unknown]
  - Abdominal distension [Unknown]
  - Nightmare [Unknown]
  - Anxiety [Unknown]
  - Thrombosis [Unknown]
